FAERS Safety Report 7568419-8 (Version None)
Quarter: 2011Q2

REPORT INFORMATION
  Report Type: 
  Country: None (occurrence: None)
  Receive Date: 20110617
  Receipt Date: 20110601
  Transmission Date: 20111010
  Serious: Yes (Other)
  Sender: FDA-Public Use
  Company Number: FK201101109

PATIENT
  Age: 16 Year
  Sex: Male

DRUGS (5)
  1. CEFOXITIN (CEFOXITIN SODIUM) (CEFOXITIN SODIUM) [Concomitant]
  2. VANCOMYCIN [Suspect]
     Indication: ANTIBIOTIC THERAPY
     Dosage: 8 GM, BONE CEMENT, INTRAVENOUS
     Route: 042
  3. TOBRAMYCIN [Suspect]
     Indication: ANTIBIOTIC THERAPY
     Dosage: 7.2 GM, BONE CEMENT
  4. KETOROLAC (KETOROLAC) [Suspect]
     Indication: PAIN MANAGEMENT
  5. PIPERACILLIN AND TAZOBACTAM [Concomitant]

REACTIONS (6)
  - OVERDOSE [None]
  - HAEMODIALYSIS [None]
  - RENAL FAILURE ACUTE [None]
  - OFF LABEL USE [None]
  - TOXICITY TO VARIOUS AGENTS [None]
  - PROCEDURAL HYPOTENSION [None]
